FAERS Safety Report 14446952 (Version 2)
Quarter: 2018Q1

REPORT INFORMATION
  Report Type: Report from Study
  Country: CA (occurrence: CA)
  Receive Date: 20180126
  Receipt Date: 20180323
  Transmission Date: 20180509
  Serious: Yes (Death, Hospitalization)
  Sender: FDA-Public Use
  Company Number: CA-HLSUS-2018-CA-000017

PATIENT
  Age: 60 Year
  Sex: Male
  Weight: 56.1 kg

DRUGS (17)
  1. COGENTIN [Concomitant]
     Active Substance: BENZTROPINE MESYLATE
  2. COLACE [Concomitant]
     Active Substance: DOCUSATE SODIUM
  3. TYLENOL [Concomitant]
     Active Substance: ACETAMINOPHEN
  4. CLOZARIL [Suspect]
     Active Substance: CLOZAPINE
     Indication: SCHIZOPHRENIA
     Dosage: 100MG BID
     Route: 048
     Dates: start: 20161024, end: 20180105
  5. STELAZINE [Concomitant]
     Active Substance: TRIFLUOPERAZINE HYDROCHLORIDE
  6. SYMBICORT [Concomitant]
     Active Substance: BUDESONIDE\FORMOTEROL FUMARATE DIHYDRATE
  7. ASPIRIN. [Concomitant]
     Active Substance: ASPIRIN
  8. EPIVAL [Concomitant]
     Active Substance: DIVALPROEX SODIUM
  9. LACTULOSE. [Concomitant]
     Active Substance: LACTULOSE
  10. LAX-A-DAY [Concomitant]
  11. ATIVAN [Concomitant]
     Active Substance: LORAZEPAM
  12. D-TABS [Concomitant]
     Active Substance: CHOLECALCIFEROL
  13. MONOCOR [Concomitant]
     Active Substance: BISOPROLOL FUMARATE
  14. ACTONEL [Concomitant]
     Active Substance: RISEDRONATE SODIUM
  15. LOXAPAC [Concomitant]
     Active Substance: LOXAPINE
  16. SPIRIVA [Concomitant]
     Active Substance: TIOTROPIUM BROMIDE MONOHYDRATE
  17. VENTOLIN [Concomitant]
     Active Substance: ALBUTEROL SULFATE

REACTIONS (3)
  - Biliary fistula [Unknown]
  - Cholecystitis chronic [Unknown]
  - Myocardial infarction [Fatal]

NARRATIVE: CASE EVENT DATE: 20171230
